FAERS Safety Report 18416487 (Version 3)
Quarter: 2020Q4

REPORT INFORMATION
  Report Type: Report from Study
  Country: DE (occurrence: DE)
  Receive Date: 20201022
  Receipt Date: 20201201
  Transmission Date: 20210114
  Serious: Yes (Hospitalization)
  Sender: FDA-Public Use
  Company Number: DE-ASTRAZENECA-2020SF33158

PATIENT
  Sex: Female
  Weight: 66 kg

DRUGS (1)
  1. FULVESTRANT. [Suspect]
     Active Substance: FULVESTRANT
     Indication: BREAST CANCER METASTATIC
     Route: 030
     Dates: start: 20200723

REACTIONS (6)
  - Haematoma [Not Recovered/Not Resolved]
  - Skin reaction [Recovered/Resolved]
  - Haematoma infection [Recovered/Resolved]
  - Pain in extremity [Not Recovered/Not Resolved]
  - Abscess [Unknown]
  - Fatigue [Not Recovered/Not Resolved]

NARRATIVE: CASE EVENT DATE: 20200723
